FAERS Safety Report 18067634 (Version 4)
Quarter: 2020Q4

REPORT INFORMATION
  Report Type: Spontaneous
  Country: US (occurrence: US)
  Receive Date: 20200724
  Receipt Date: 20201214
  Transmission Date: 20210113
  Serious: No
  Sender: FDA-Public Use
  Company Number: US-SA-2020SA189488

PATIENT

DRUGS (1)
  1. LANTUS [Suspect]
     Active Substance: INSULIN GLARGINE
     Dosage: 35 IU, QD
     Route: 065
     Dates: start: 20100101

REACTIONS (2)
  - Hypoglycaemia [Unknown]
  - Blood glucose increased [Unknown]
